FAERS Safety Report 6521990-7 (Version None)
Quarter: 2009Q4

REPORT INFORMATION
  Report Type: 
  Country: None (occurrence: None)
  Receive Date: 20091230
  Receipt Date: 20091222
  Transmission Date: 20100525
  Serious: Yes (Other)
  Sender: FDA-Public Use
  Company Number: US-ASTRAZENECA-2009SE33155

PATIENT
  Sex: Female
  Weight: 61.2 kg

DRUGS (1)
  1. CRESTOR [Suspect]
     Dosage: 5 MG EVERY TWO WEEKS
     Route: 048

REACTIONS (1)
  - EYE HAEMORRHAGE [None]
